FAERS Safety Report 8513289-4 (Version None)
Quarter: 2012Q3

REPORT INFORMATION
  Report Type: 
  Country: None (occurrence: None)
  Receive Date: 20120716
  Receipt Date: 20120710
  Transmission Date: 20120928
  Serious: Yes (Hospitalization)
  Sender: FDA-Public Use
  Company Number: RU-ROCHE-1086132

PATIENT
  Age: 53 Year
  Sex: Female

DRUGS (1)
  1. BONIVA [Suspect]
     Indication: SPONDYLOARTHROPATHY
     Route: 048
     Dates: start: 20100101

REACTIONS (1)
  - PANCREATITIS ACUTE [None]
